FAERS Safety Report 20966683 (Version 2)
Quarter: 2022Q3

REPORT INFORMATION
  Report Type: Spontaneous
  Country: IT (occurrence: IT)
  Receive Date: 20220616
  Receipt Date: 20220706
  Transmission Date: 20221027
  Serious: Yes (Other)
  Sender: FDA-Public Use
  Company Number: None

PATIENT
  Age: 17 Year
  Sex: Male

DRUGS (18)
  1. DEXAMETHASONE [Suspect]
     Active Substance: DEXAMETHASONE
     Indication: T-cell type acute leukaemia
     Dosage: UNK (RE-INDUCTION THERAPY)
     Route: 048
  2. DEXAMETHASONE [Suspect]
     Active Substance: DEXAMETHASONE
     Dosage: UNK (TAPERING DOSE)
     Route: 048
  3. DEXAMETHASONE [Suspect]
     Active Substance: DEXAMETHASONE
     Dosage: UNK (TACL CONSORTIUM 2005-003 THERAPY)
     Route: 048
  4. DOXORUBICIN [Suspect]
     Active Substance: DOXORUBICIN
     Indication: T-cell type acute leukaemia
     Dosage: UNK (AS A PART OF FLAG REGIMEN )
     Route: 065
  5. DOXORUBICIN [Suspect]
     Active Substance: DOXORUBICIN
     Dosage: UNK (TACL CONSORTIUM 2005-003 THERAPY)
     Route: 042
  6. METHOTREXATE [Suspect]
     Active Substance: METHOTREXATE
     Indication: T-cell type acute leukaemia
     Dosage: UNK (CONSOLIDATION PHASE)
     Route: 065
  7. METHOTREXATE [Suspect]
     Active Substance: METHOTREXATE
     Dosage: UNK (MAINTENANCE CHEMOTHERAPY)
     Route: 065
  8. METHYLPREDNISOLONE [Suspect]
     Active Substance: METHYLPREDNISOLONE
     Indication: T-cell type acute leukaemia
     Dosage: UNK
     Route: 065
  9. METHYLPREDNISOLONE [Suspect]
     Active Substance: METHYLPREDNISOLONE
     Dosage: UNK (TAPERING DOWN)
     Route: 065
  10. ANAKINRA [Suspect]
     Active Substance: ANAKINRA
     Indication: T-cell type acute leukaemia
     Dosage: 100 MILLIGRAM, PER DAY
     Route: 058
  11. ANAKINRA [Suspect]
     Active Substance: ANAKINRA
     Dosage: 100 MILLIGRAM, BID
     Route: 058
  12. ANAKINRA [Suspect]
     Active Substance: ANAKINRA
     Dosage: UNK, RECEIVED SECOND AND THIRD LINE THERAPY WITH ANAKINRA
     Route: 065
  13. FLUDARABINE [Suspect]
     Active Substance: FLUDARABINE PHOSPHATE
     Indication: T-cell type acute leukaemia
     Dosage: UNK (PART OF FLAG PROTOCOL)
     Route: 042
  14. CYTARABINE [Suspect]
     Active Substance: CYTARABINE
     Indication: T-cell type acute leukaemia
     Dosage: UNK (PART OF FLAG PROTOCOL)
     Route: 042
  15. CYTARABINE [Suspect]
     Active Substance: CYTARABINE
     Dosage: UNK (PART OF TACL CONSORTIUM 2005-003 THERAPY)
     Route: 037
  16. BORTEZOMIB [Suspect]
     Active Substance: BORTEZOMIB
     Indication: T-cell type acute leukaemia
     Dosage: UNK (TACL CONSORTIUM 2005-003 THERAPY)
     Route: 042
  17. VINCRISTINE [Suspect]
     Active Substance: VINCRISTINE
     Indication: T-cell type acute leukaemia
     Dosage: UNK (TACL CONSORTIUM 2005-003 THERAPY)
     Route: 042
  18. PEGASPARGASE [Suspect]
     Active Substance: PEGASPARGASE
     Indication: T-cell type acute leukaemia
     Dosage: UNK (TACL CONSORTIUM 2005-003 THERAPY)
     Route: 030

REACTIONS (11)
  - Venoocclusive liver disease [Unknown]
  - Cytopenia [Unknown]
  - Cystitis haemorrhagic [Unknown]
  - Renal disorder [Unknown]
  - Renal failure [Unknown]
  - Sepsis [Unknown]
  - Escherichia infection [Recovered/Resolved]
  - Cytomegalovirus hepatitis [Unknown]
  - Cardiac failure [Unknown]
  - Skin striae [Unknown]
  - Hypertension [Unknown]
